FAERS Safety Report 4530203-7 (Version None)
Quarter: 2004Q4

REPORT INFORMATION
  Report Type: 
  Country: None (occurrence: None)
  Receive Date: 20041217
  Receipt Date: 20040910
  Transmission Date: 20050328
  Serious: Yes (Hospitalization)
  Sender: FDA-Public Use
  Company Number: 200413412FR

PATIENT
  Age: 66 Year
  Sex: Male
  Weight: 110 kg

DRUGS (11)
  1. LANTUS [Suspect]
     Indication: DIABETES MELLITUS NON-INSULIN-DEPENDENT
     Route: 058
     Dates: start: 20040418, end: 20040801
  2. RAPID ACTING INSULIN [Concomitant]
     Indication: DIABETES MELLITUS NON-INSULIN-DEPENDENT
     Route: 058
  3. TARDYFERON [Concomitant]
     Route: 048
  4. ZOCOR [Concomitant]
     Route: 048
  5. AMLOR [Concomitant]
     Route: 048
  6. TAREG [Concomitant]
     Route: 048
  7. LASILIX [Concomitant]
     Route: 048
  8. PLAVIX [Concomitant]
     Route: 048
  9. NEXIUM [Concomitant]
     Route: 048
  10. NITROGLYCERIN [Concomitant]
  11. NEORECORMON [Concomitant]

REACTIONS (5)
  - CARDIAC FAILURE [None]
  - CONDITION AGGRAVATED [None]
  - FLUID RETENTION [None]
  - OEDEMA PERIPHERAL [None]
  - SODIUM RETENTION [None]
